FAERS Safety Report 24221872 (Version 1)
Quarter: 2024Q3

REPORT INFORMATION
  Report Type: Spontaneous
  Country: US (occurrence: US)
  Receive Date: 20240819
  Receipt Date: 20240819
  Transmission Date: 20241017
  Serious: Yes (Hospitalization)
  Sender: ASPIRO PHARMA
  Company Number: US-ASPIRO-ASP2024US02722

PATIENT
  Age: 57 Year
  Sex: Male

DRUGS (2)
  1. LIDOCAINE [Suspect]
     Active Substance: LIDOCAINE
     Indication: Ventricular tachycardia
     Dosage: UNK
     Route: 042
  2. MAGNESIUM [Suspect]
     Active Substance: MAGNESIUM
     Indication: Ventricular tachycardia
     Dosage: UNK
     Route: 042

REACTIONS (1)
  - Drug ineffective for unapproved indication [Unknown]
